FAERS Safety Report 8148725 (Version 2)
Quarter: 2014Q2

REPORT INFORMATION
  Report Type: Report from Study
  Country: US (occurrence: US)
  Receive Date: 20110922
  Receipt Date: 20140530
  Transmission Date: 20141212
  Serious: Yes (Hospitalization)
  Sender: FDA-Public Use
  Company Number: US-ASTRAZENECA-2010SE48821

PATIENT
  Age: 841 Month
  Sex: Female
  Weight: 89.4 kg

DRUGS (17)
  1. SEROQUEL XR [Suspect]
     Indication: ANXIETY
     Route: 048
     Dates: start: 2011
  2. SEROQUEL XR [Suspect]
     Indication: DEPRESSION
     Route: 048
     Dates: start: 2011
  3. COUMADIN [Suspect]
     Route: 065
  4. XANAX [Concomitant]
     Indication: ANXIETY
     Route: 048
  5. XANAX [Concomitant]
     Indication: DEPRESSION
     Route: 048
  6. PANTOPRAZOLE DR [Concomitant]
     Indication: ULCER
     Route: 048
  7. FISH OIL [Concomitant]
     Indication: BLOOD TRIGLYCERIDES
     Dosage: 1 CAP DAILY
     Route: 048
  8. LOSARTAN [Concomitant]
     Indication: BLOOD PRESSURE ABNORMAL
     Route: 048
  9. FENOFIBRATE [Concomitant]
     Indication: BLOOD CHOLESTEROL ABNORMAL
     Route: 048
  10. LEVOTHYROXINE [Concomitant]
     Indication: THYROID DISORDER
     Dosage: 25MCG DAILY
     Route: 048
  11. CILOSTAZOL [Concomitant]
     Indication: ANGIOPATHY
     Route: 048
  12. TRIAMTERENE HCTZ [Concomitant]
     Indication: DIURETIC THERAPY
     Dosage: 37.5MG/25MG BID
     Route: 048
  13. VITAMIN D [Concomitant]
     Indication: VITAMIN D DECREASED
     Route: 048
  14. VITAMIN B12 [Concomitant]
     Indication: ASTHENIA
     Dosage: 2000MCG DAILY
     Route: 048
  15. CALCIUM WITH VITAMIN D [Concomitant]
     Indication: ARTHRITIS
     Route: 048
  16. DULCOLAX [Concomitant]
     Indication: CONSTIPATION
     Dosage: UNKNOWN PRN
     Route: 048
  17. MIRALAX [Concomitant]
     Indication: CONSTIPATION
     Dosage: UNKNOWN PRN
     Route: 048

REACTIONS (7)
  - Fall [Recovered/Resolved]
  - Arthritis [Not Recovered/Not Resolved]
  - International normalised ratio increased [Unknown]
  - Anxiety [Recovered/Resolved]
  - Body height decreased [Unknown]
  - Malaise [Unknown]
  - Drug dose omission [Unknown]
